FAERS Safety Report 18077193 (Version 1)
Quarter: 2020Q3

REPORT INFORMATION
  Report Type: Report from Study
  Country: EG (occurrence: EG)
  Receive Date: 20200727
  Receipt Date: 20200727
  Transmission Date: 20201103
  Serious: Yes (Life-Threatening, Other)
  Sender: FDA-Public Use
  Company Number: NVSC2020EG207464

PATIENT
  Sex: Female

DRUGS (6)
  1. INSULIN [Concomitant]
     Active Substance: INSULIN NOS
     Dosage: 20 IU (AFTER STOPPING DRUG)
     Route: 065
  2. AFINITOR [Suspect]
     Active Substance: EVEROLIMUS
     Indication: METASTASES TO BONE
  3. DEXAMETHASONE. [Concomitant]
     Active Substance: DEXAMETHASONE
     Indication: PRODUCT USED FOR UNKNOWN INDICATION
     Dosage: UNK (STARTED WITH CHEMOTHERAPY AND STILL ONGOING)
     Route: 065
  4. AFINITOR [Suspect]
     Active Substance: EVEROLIMUS
     Indication: BREAST CANCER
     Dosage: UNK UNK, BID
     Route: 065
     Dates: start: 20200201, end: 202004
  5. ATOREZA [Concomitant]
     Indication: PRODUCT USED FOR UNKNOWN INDICATION
     Dosage: UNK DF, QD (20/10 1 TAB PER DAY)
     Route: 065
     Dates: start: 20200415
  6. INSULIN [Concomitant]
     Active Substance: INSULIN NOS
     Indication: PRODUCT USED FOR UNKNOWN INDICATION
     Dosage: 40 UNK
     Route: 065

REACTIONS (8)
  - Blood glucose increased [Recovering/Resolving]
  - Epistaxis [Recovering/Resolving]
  - Mouth haemorrhage [Recovering/Resolving]
  - Vasculitis [Recovering/Resolving]
  - Vascular pain [Recovering/Resolving]
  - Pigmentation disorder [Recovering/Resolving]
  - Oedema peripheral [Recovering/Resolving]
  - Lipids increased [Recovering/Resolving]
